FAERS Safety Report 6947260-0 (Version None)
Quarter: 2010Q3

REPORT INFORMATION
  Report Type: 
  Country: None (occurrence: None)
  Receive Date: 20100825
  Receipt Date: 20100805
  Transmission Date: 20110219
  Serious: Yes (Life-Threatening)
  Sender: FDA-Public Use
  Company Number: NPIL/ISO/H/2010/032

PATIENT
  Age: 20 Year
  Sex: Female
  Weight: 65 kg

DRUGS (10)
  1. ISOFLURANE [Suspect]
     Indication: CAESAREAN SECTION
     Dosage: ONCE, INHALATION
     Route: 055
  2. BUPIVACAINE HCL [Concomitant]
  3. FENTANYL CITRATE [Concomitant]
  4. LIDOCAINE [Concomitant]
  5. METACLOPROMIDE [Concomitant]
  6. OXYTOCIN [Concomitant]
  7. RANITIDINE [Concomitant]
  8. THIOPENTAL SODIUM [Concomitant]
  9. SODIUM CITRATE [Concomitant]
  10. SUXAMETHONIUM [Concomitant]

REACTIONS (4)
  - CARDIAC ARREST [None]
  - DRUG EXPOSURE DURING PREGNANCY [None]
  - ELECTROMECHANICAL DISSOCIATION [None]
  - UTERINE INVERSION [None]
